FAERS Safety Report 15407495 (Version 1)
Quarter: 2018Q3

REPORT INFORMATION
  Report Type: Spontaneous
  Country: US (occurrence: US)
  Receive Date: 20180920
  Receipt Date: 20180920
  Transmission Date: 20181010
  Serious: No
  Sender: FDA-Public Use
  Company Number: US-AMARIN PHARMA, INC.-2018AMR000060

PATIENT
  Sex: Male
  Weight: 80.81 kg

DRUGS (1)
  1. VASCEPA [Suspect]
     Active Substance: ICOSAPENT ETHYL
     Indication: PRODUCT USED FOR UNKNOWN INDICATION
     Route: 048
     Dates: start: 2018

REACTIONS (4)
  - Product adhesion issue [Unknown]
  - Product odour abnormal [Unknown]
  - Product coating issue [Unknown]
  - Abdominal pain upper [Unknown]

NARRATIVE: CASE EVENT DATE: 2018
